FAERS Safety Report 4780753-3 (Version None)
Quarter: 2005Q3

REPORT INFORMATION
  Report Type: 
  Country: None (occurrence: None)
  Receive Date: 20050920
  Receipt Date: 20050912
  Transmission Date: 20060218
  Serious: Yes (Hospitalization)
  Sender: FDA-Public Use
  Company Number: 050913-0000726

PATIENT
  Age: 45 Year
  Sex: Female
  Weight: 48.9885 kg

DRUGS (6)
  1. PANHEMATIN [Suspect]
     Indication: PORPHYRIA
     Dosage: UNKNOWN, QW; IV, 230 MG, QD, IV
     Route: 042
     Dates: start: 20050818, end: 20050820
  2. PANHEMATIN [Suspect]
     Indication: PORPHYRIA
     Dosage: UNKNOWN, QW; IV, 230 MG, QD, IV
     Route: 042
     Dates: start: 20000101
  3. HYDROCORTISONE [Concomitant]
  4. PERCOCET [Concomitant]
  5. CYMBALTA [Concomitant]
  6. LORAZEPAM [Concomitant]

REACTIONS (7)
  - ALANINE AMINOTRANSFERASE INCREASED [None]
  - ASPARTATE AMINOTRANSFERASE INCREASED [None]
  - BLADDER DISORDER [None]
  - DISORIENTATION [None]
  - HEADACHE [None]
  - MUSCULAR WEAKNESS [None]
  - PLATELET COUNT DECREASED [None]
